FAERS Safety Report 9429805 (Version 1)
Quarter: 2013Q3

REPORT INFORMATION
  Report Type: Spontaneous
  Country: US (occurrence: US)
  Receive Date: 20130730
  Receipt Date: 20130730
  Transmission Date: 20140515
  Serious: No
  Sender: FDA-Public Use
  Company Number: US-ABBOTT-13P-163-1073617-00

PATIENT
  Sex: Female

DRUGS (1)
  1. NIASPAN (COATED) [Suspect]
     Indication: PRODUCT USED FOR UNKNOWN INDICATION

REACTIONS (6)
  - Blood thyroid stimulating hormone increased [Unknown]
  - Myalgia [Not Recovered/Not Resolved]
  - Nausea [Unknown]
  - Flatulence [Unknown]
  - Abdominal pain upper [Unknown]
  - Paraesthesia [Unknown]
